FAERS Safety Report 8613399-7 (Version None)
Quarter: 2012Q3

REPORT INFORMATION
  Report Type: 
  Country: None (occurrence: None)
  Receive Date: 20120822
  Receipt Date: 20111008
  Transmission Date: 20120928
  Serious: Yes (Other)
  Sender: FDA-Public Use
  Company Number: PHEH2011US013215

PATIENT
  Sex: Female

DRUGS (9)
  1. LOVAZA [Concomitant]
  2. EXFORGE HCT [Suspect]
     Dosage: 1 DF, QD
  3. FISH OIL [Concomitant]
  4. HYDROCODONE BITARTRATE [Suspect]
     Indication: PAIN
     Dosage: 5-500 MG, UNK
  5. VITAMIN D [Concomitant]
  6. PROBIOTICS [Concomitant]
  7. CYMBALTA [Concomitant]
  8. EXFORGE [Suspect]
     Dosage: 5 AML/160 VALS, QD
  9. ASCORBIC ACID [Concomitant]

REACTIONS (8)
  - ROTATOR CUFF SYNDROME [None]
  - FATIGUE [None]
  - CARPAL TUNNEL SYNDROME [None]
  - DYSPNOEA [None]
  - PARAESTHESIA [None]
  - THYROID NEOPLASM [None]
  - MUSCULOSKELETAL DISCOMFORT [None]
  - SPEECH DISORDER [None]
